FAERS Safety Report 14716681 (Version 2)
Quarter: 2018Q2

REPORT INFORMATION
  Report Type: Report from Study
  Country: US (occurrence: US)
  Receive Date: 20180404
  Receipt Date: 20180626
  Transmission Date: 20180711
  Serious: Yes (Other)
  Sender: FDA-Public Use
  Company Number: US-GILEAD-2018-0330137

PATIENT
  Age: 37 Year
  Sex: Female

DRUGS (2)
  1. AMBRISENTAN [Suspect]
     Active Substance: AMBRISENTAN
     Indication: PRODUCT USED FOR UNKNOWN INDICATION
     Dosage: 10 MG, QD
     Route: 065
     Dates: start: 20160113
  2. ADCIRCA [Concomitant]
     Active Substance: TADALAFIL

REACTIONS (12)
  - Eye contusion [Unknown]
  - Nasal polyps [Not Recovered/Not Resolved]
  - Tonsillar hypertrophy [Not Recovered/Not Resolved]
  - Cough [Not Recovered/Not Resolved]
  - Dyspnoea [Not Recovered/Not Resolved]
  - Dizziness [Not Recovered/Not Resolved]
  - Fall [Unknown]
  - Sleep apnoea syndrome [Not Recovered/Not Resolved]
  - Oropharyngeal pain [Not Recovered/Not Resolved]
  - Nocturnal dyspnoea [Not Recovered/Not Resolved]
  - Syncope [Unknown]
  - Pharyngeal oedema [Not Recovered/Not Resolved]
